FAERS Safety Report 6656117-4 (Version None)
Quarter: 2010Q1

REPORT INFORMATION
  Report Type: 
  Country: None (occurrence: None)
  Receive Date: 20100329
  Receipt Date: 20100319
  Transmission Date: 20100710
  Serious: Yes (Hospitalization)
  Sender: FDA-Public Use
  Company Number: B0643321A

PATIENT
  Sex: Female

DRUGS (7)
  1. SEROXAT [Suspect]
     Indication: DEPRESSION
     Route: 048
  2. OCTOSTIM [Suspect]
     Route: 042
     Dates: start: 20100217, end: 20100217
  3. LEVOTHYROXINE SODIUM [Concomitant]
     Indication: HYPOTHYROIDISM
     Route: 048
  4. IBUX [Concomitant]
     Indication: PAIN
     Dosage: 1TAB TWICE PER DAY
     Route: 048
  5. IMOVANE [Concomitant]
     Route: 048
  6. PARACET [Concomitant]
     Indication: PAIN
     Route: 048
  7. RINGER ACETATE SOLUTION [Concomitant]

REACTIONS (2)
  - DRUG INTERACTION [None]
  - HYPONATRAEMIC ENCEPHALOPATHY [None]
